FAERS Safety Report 11069529 (Version 1)
Quarter: 2015Q2

REPORT INFORMATION
  Report Type: Spontaneous
  Country: US (occurrence: US)
  Receive Date: 20150427
  Receipt Date: 20150427
  Transmission Date: 20150821
  Serious: No
  Sender: FDA-Public Use
  Company Number: US-GLAXOSMITHKLINE-US2015GSK056091

PATIENT
  Sex: Female

DRUGS (1)
  1. TANZEUM [Suspect]
     Active Substance: ALBIGLUTIDE
     Indication: WEIGHT INCREASED
     Dosage: 50 MG, WE
     Route: 058
     Dates: start: 20150405

REACTIONS (3)
  - Weight increased [Unknown]
  - Laboratory test abnormal [Unknown]
  - Off label use [Unknown]
